FAERS Safety Report 7740568-0 (Version None)
Quarter: 2011Q3

REPORT INFORMATION
  Report Type: 
  Country: None (occurrence: None)
  Receive Date: 20110909
  Receipt Date: 20110830
  Transmission Date: 20111222
  Serious: Yes (Hospitalization)
  Sender: FDA-Public Use
  Company Number: US-BAYER-2011-080734

PATIENT
  Age: 35 Year
  Sex: Female

DRUGS (1)
  1. YASMIN [Suspect]

REACTIONS (6)
  - PALPITATIONS [None]
  - PULMONARY HAEMORRHAGE [None]
  - TACHYPNOEA [None]
  - PULMONARY INFARCTION [None]
  - SINUS TACHYCARDIA [None]
  - PULMONARY EMBOLISM [None]
